FAERS Safety Report 13179502 (Version 2)
Quarter: 2017Q2

REPORT INFORMATION
  Report Type: Spontaneous
  Country: FR (occurrence: FR)
  Receive Date: 20170202
  Receipt Date: 20170411
  Transmission Date: 20170830
  Serious: Yes (Other)
  Sender: FDA-Public Use
  Company Number: FR-TEVA-733356ROM

PATIENT
  Age: 71 Year
  Sex: Female

DRUGS (10)
  1. UVEDOSE 100 000 UI [Suspect]
     Active Substance: CHOLECALCIFEROL
     Dosage: LONG STANDING TREATMENT
     Route: 048
  2. ACTONEL [Suspect]
     Active Substance: RISEDRONATE SODIUM
     Dosage: 1 TABLET 2 CONSECUTIVE DAYS PER MONTH, LONG STANDING TREATMENT
     Route: 048
  3. CEREZYME [Suspect]
     Active Substance: IMIGLUCERASE
     Indication: GAUCHER^S DISEASE
     Dosage: FORM OF ADMINISTRATION: POWDER FOR INJECTION SOLUTION OR PERFUSION
     Route: 042
     Dates: start: 1992, end: 201110
  4. TRAMADOL. [Suspect]
     Active Substance: TRAMADOL
     Route: 048
  5. ARTELAC 1.6 MG/ 0.5 ML [Suspect]
     Active Substance: HYPROMELLOSES
     Dosage: 3 DOSAGE FORMS DAILY;
     Route: 047
  6. XYZALL 5 MG/ML [Suspect]
     Active Substance: LEVOCETIRIZINE DIHYDROCHLORIDE
     Dosage: LONG STANDING TREATMENT
     Route: 048
  7. VPRIV [Suspect]
     Active Substance: VELAGLUCERASE ALFA
     Indication: GAUCHER^S DISEASE
     Dosage: LONG STANDING TREATMENT, 60 IU/KG 1  IN 2 WEEKS
     Route: 042
     Dates: start: 201110
  8. CALTRATE [Suspect]
     Active Substance: CALCIUM CARBONATE
     Dosage: 1 DOSAGE FORMS DAILY;
     Route: 048
  9. PARACETAMOL [Suspect]
     Active Substance: ACETAMINOPHEN
     Route: 048
  10. PIASCLEDINE 300 MG [Suspect]
     Active Substance: AVOCADO OIL\SOYBEAN OIL
     Dosage: 1 DOSAGE FORMS DAILY;
     Route: 048

REACTIONS (2)
  - Hepatic cirrhosis [Not Recovered/Not Resolved]
  - Cholangiocarcinoma [Not Recovered/Not Resolved]

NARRATIVE: CASE EVENT DATE: 201602
